FAERS Safety Report 16814593 (Version 1)
Quarter: 2019Q3

REPORT INFORMATION
  Report Type: Spontaneous
  Country: CA (occurrence: CA)
  Receive Date: 20190917
  Receipt Date: 20190917
  Transmission Date: 20191005
  Serious: Yes (Death)
  Sender: FDA-Public Use
  Company Number: CA-TEVA-2019-CA-1107931

PATIENT
  Age: 44 Year
  Sex: Female
  Weight: 86 kg

DRUGS (11)
  1. NAPROXEN. [Concomitant]
     Active Substance: NAPROXEN
  2. RABEPRAZOLE [Concomitant]
     Active Substance: RABEPRAZOLE
  3. HYDROMORPHONE [Suspect]
     Active Substance: HYDROMORPHONE
     Route: 065
  4. TEVA-OXYCOCET [Concomitant]
     Active Substance: ACETAMINOPHEN\OXYCODONE HYDROCHLORIDE
  5. OXYCODONE [Suspect]
     Active Substance: OXYCODONE
     Route: 065
  6. FENTANYL. [Suspect]
     Active Substance: FENTANYL
     Route: 065
  7. MORPHINE [Suspect]
     Active Substance: MORPHINE
     Route: 065
  8. COCAINE [Suspect]
     Active Substance: COCAINE
     Route: 065
  9. QUETIAPINE. [Concomitant]
     Active Substance: QUETIAPINE
  10. PAROXETINE. [Suspect]
     Active Substance: PAROXETINE
     Route: 065
  11. PREGABALIN (MANUFACTURER UNKNOWN) [Suspect]
     Active Substance: PREGABALIN
     Route: 065

REACTIONS (2)
  - Brain injury [Fatal]
  - Pneumonia aspiration [Fatal]
